FAERS Safety Report 6266079-X (Version None)
Quarter: 2009Q3

REPORT INFORMATION
  Report Type: 
  Country: None (occurrence: None)
  Receive Date: 20090713
  Receipt Date: 20090701
  Transmission Date: 20100115
  Serious: Yes (Hospitalization)
  Sender: FDA-Public Use
  Company Number: ZA-ELI_LILLY_AND_COMPANY-ZA200907000366

PATIENT
  Sex: Male

DRUGS (2)
  1. ZYPREXA [Suspect]
     Indication: SCHIZOPHRENIA, PARANOID TYPE
     Dosage: 20 MG, UNK
     Dates: start: 20081201, end: 20090601
  2. ZYPREXA [Suspect]
     Dosage: 30 MG, UNK
     Dates: start: 20090626

REACTIONS (2)
  - HOSPITALISATION [None]
  - OVERDOSE [None]
